FAERS Safety Report 21458528 (Version 1)
Quarter: 2022Q4

REPORT INFORMATION
  Report Type: Spontaneous
  Country: US (occurrence: None)
  Receive Date: 20221013
  Receipt Date: 20221013
  Transmission Date: 20230113
  Serious: Yes (Hospitalization, Disabling)
  Sender: FDA-Public Use
  Company Number: None

PATIENT
  Age: 12 Week
  Sex: Female
  Weight: 69.75 kg

DRUGS (1)
  1. FLOMAX [Suspect]
     Active Substance: TAMSULOSIN HYDROCHLORIDE
     Indication: Renal cyst
     Dates: start: 20221008

REACTIONS (2)
  - Confusional state [None]
  - Intentional product use issue [None]

NARRATIVE: CASE EVENT DATE: 20221010
